FAERS Safety Report 4433751-3 (Version None)
Quarter: 2004Q3

REPORT INFORMATION
  Report Type: 
  Country: None (occurrence: None)
  Receive Date: 20040825
  Receipt Date: 20040825
  Transmission Date: 20050211
  Serious: Yes (Hospitalization)
  Sender: FDA-Public Use
  Company Number: None

PATIENT
  Age: 3 Year
  Sex: Male
  Weight: 14 kg

DRUGS (4)
  1. DUONEB [Suspect]
     Indication: ASTHMA
     Dosage: DUONEB X 1
     Route: 055
  2. DUONEB [Suspect]
     Indication: CONDITION AGGRAVATED
     Dosage: DUONEB X 1
     Route: 055
  3. ALB NEBS [Concomitant]
  4. IV SOLU MEDROL [Concomitant]

REACTIONS (1)
  - DRUG HYPERSENSITIVITY [None]
